FAERS Safety Report 6144419-X (Version None)
Quarter: 2009Q2

REPORT INFORMATION
  Report Type: 
  Country: None (occurrence: None)
  Receive Date: 20090401
  Receipt Date: 20090317
  Transmission Date: 20091009
  Serious: Yes (Life-Threatening, Hospitalization)
  Sender: FDA-Public Use
  Company Number: 2009MB000021

PATIENT
  Age: 70 Year
  Sex: Female

DRUGS (6)
  1. CEPHALEXIN [Suspect]
     Indication: LOWER RESPIRATORY TRACT INFECTION
     Dosage: 500 MG; TID; PO
     Route: 048
     Dates: start: 20090127
  2. WARFARIN SODIUM [Suspect]
     Indication: ATRIAL FIBRILLATION
     Dates: end: 20090208
  3. ATENOLOL [Concomitant]
  4. CANDESARTAN [Concomitant]
  5. FLECAINIDE ACETATE [Concomitant]
  6. PREMARIN [Concomitant]

REACTIONS (5)
  - CONJUNCTIVAL HAEMORRHAGE [None]
  - DRUG INTERACTION [None]
  - GINGIVAL BLEEDING [None]
  - HAEMATURIA [None]
  - INTERNATIONAL NORMALISED RATIO INCREASED [None]
